FAERS Safety Report 17839477 (Version 1)
Quarter: 2020Q2

REPORT INFORMATION
  Report Type: Report from Study
  Country: None (occurrence: IL)
  Receive Date: 20200529
  Receipt Date: 20200529
  Transmission Date: 20200714
  Serious: Yes (Hospitalization)
  Sender: FDA-Public Use
  Company Number: IL-ABBVIE-20K-082-3421005-00

PATIENT
  Age: 75 Year
  Sex: Male

DRUGS (2)
  1. DUODOPA [Suspect]
     Active Substance: CARBIDOPA\LEVODOPA
     Indication: PARKINSON^S DISEASE
     Route: 050
     Dates: start: 20171126
  2. DUODOPA [Suspect]
     Active Substance: CARBIDOPA\LEVODOPA
     Dosage: CURRENT: M.D 6.5ML, C.D DAY 3.5ML/HOUR, C.D NIGHT 3ML/HOUR, E.D 2ML
     Route: 050

REACTIONS (5)
  - Skin disorder [Unknown]
  - Confusional state [Unknown]
  - Fall [Unknown]
  - Renal failure [Unknown]
  - Blood creatine phosphokinase abnormal [Recovered/Resolved]

NARRATIVE: CASE EVENT DATE: 202005
